FAERS Safety Report 7185909-0 (Version None)
Quarter: 2010Q4

REPORT INFORMATION
  Report Type: 
  Country: None (occurrence: None)
  Receive Date: 20101222
  Receipt Date: 20101213
  Transmission Date: 20110411
  Serious: Yes (Hospitalization)
  Sender: FDA-Public Use
  Company Number: GXKR2010GB14116

PATIENT
  Age: 73 Year
  Sex: Male

DRUGS (13)
  1. BENDROFLUMETHIAZIDE (NGX) [Suspect]
     Dosage: 2.5 MG
     Route: 048
  2. LANSOPRAZOLE [Suspect]
     Route: 065
  3. METRONIDAZOLE [Suspect]
     Route: 065
  4. OMEPRAZOLE [Suspect]
     Dosage: 40 MG, QD
     Route: 065
  5. SIMVASTATIN [Suspect]
     Dosage: 20MG
     Route: 048
  6. PARACETAMOL [Suspect]
     Dosage: 1 G, Q4H
     Route: 065
  7. OMEGA-3-ACID ETHYL ESTERS [Suspect]
     Dosage: 1000 MG
     Route: 048
  8. TAZOCIN [Suspect]
     Dosage: 4.5 G
     Route: 065
  9. ACETYLSALICYLIC ACID [Concomitant]
     Dosage: 75 MG
     Route: 048
  10. BECLOMETHASONE DIPROPIONATE [Concomitant]
     Dosage: 250 UG
     Route: 065
  11. CLEXANE [Concomitant]
     Dosage: 40 MG, QD
     Route: 058
  12. FELODIPINE [Concomitant]
     Dosage: 2.5 MG, QD
     Route: 048
  13. FLUTICASONE PROPIONATE [Concomitant]
     Dosage: 27.5 UG
     Route: 065

REACTIONS (2)
  - JAUNDICE [None]
  - LIVER FUNCTION TEST ABNORMAL [None]
